FAERS Safety Report 26113224 (Version 2)
Quarter: 2025Q4

REPORT INFORMATION
  Report Type: Spontaneous
  Country: US (occurrence: US)
  Receive Date: 20251202
  Receipt Date: 20251226
  Transmission Date: 20260117
  Serious: Yes (Other)
  Sender: ORGANON
  Company Number: US-ORGANON-O2511USA001511

PATIENT
  Sex: Male

DRUGS (3)
  1. FINASTERIDE [Suspect]
     Active Substance: FINASTERIDE
     Indication: Alopecia
     Dosage: 1 PILL ONCE A DAY
     Route: 061
     Dates: start: 201809, end: 20250620
  2. FINASTERIDE [Suspect]
     Active Substance: FINASTERIDE
     Dosage: 5 MG ONCE DAILY
     Dates: start: 202210, end: 202306
  3. METHOTREXATE [Concomitant]
     Active Substance: METHOTREXATE
     Dosage: UNK

REACTIONS (13)
  - Neuropathy peripheral [Recovering/Resolving]
  - Hypertension [Recovering/Resolving]
  - Hypoacusis [Recovering/Resolving]
  - Dermatitis psoriasiform [Not Recovered/Not Resolved]
  - Dysphagia [Recovering/Resolving]
  - Vibratory sense increased [Recovering/Resolving]
  - Visual impairment [Recovering/Resolving]
  - Tinnitus [Recovering/Resolving]
  - Nightmare [Recovering/Resolving]
  - Cognitive disorder [Recovering/Resolving]
  - Condition aggravated [Not Recovered/Not Resolved]
  - Adverse event [Recovering/Resolving]
  - Product dose omission in error [Unknown]

NARRATIVE: CASE EVENT DATE: 20200101
